FAERS Safety Report 7461532-5 (Version None)
Quarter: 2011Q2

REPORT INFORMATION
  Report Type: 
  Country: None (occurrence: None)
  Receive Date: 20110428
  Receipt Date: 20110414
  Transmission Date: 20111010
  Serious: Yes (Other)
  Sender: FDA-Public Use
  Company Number: CIP11000739

PATIENT
  Age: 90 Year
  Sex: Male

DRUGS (4)
  1. MINERALS NOS (MINERALS NOS) [Concomitant]
  2. HERBAL PREPARATION [Concomitant]
  3. VITAMINS NOS (VITAMINS NOS) [Concomitant]
  4. ACTONEL [Suspect]
     Dosage: 35 MG ONCE WEEKLY, ORAL
     Route: 048
     Dates: start: 20090301, end: 20110301

REACTIONS (3)
  - BEDRIDDEN [None]
  - BALANCE DISORDER [None]
  - ILL-DEFINED DISORDER [None]
